FAERS Safety Report 7865219-6 (Version None)
Quarter: 2011Q4

REPORT INFORMATION
  Report Type: 
  Country: None (occurrence: None)
  Receive Date: 20111028
  Receipt Date: 20101102
  Transmission Date: 20120403
  Serious: No
  Sender: FDA-Public Use
  Company Number: US-GLAXOSMITHKLINE-A0890303A

PATIENT
  Age: 81 Year
  Sex: Female
  Weight: 94.3 kg

DRUGS (8)
  1. AROMASIN [Concomitant]
     Indication: BREAST CANCER
     Dates: start: 20101111
  2. ADVAIR DISKUS 100/50 [Suspect]
     Indication: CHRONIC OBSTRUCTIVE PULMONARY DISEASE
     Dosage: 1PUFF TWICE PER DAY
     Route: 055
     Dates: start: 20050101
  3. ARIMIDEX [Suspect]
     Indication: BREAST CANCER
     Route: 065
     Dates: start: 20010809, end: 20101101
  4. PLAVIX [Concomitant]
  5. LORAZEPAM [Concomitant]
  6. XOPENEX [Concomitant]
  7. METOPROLOL TARTRATE [Concomitant]
  8. LISINOPRIL [Concomitant]

REACTIONS (7)
  - WHEEZING [None]
  - MEDICATION ERROR [None]
  - DYSPNOEA [None]
  - PRODUCT QUALITY ISSUE [None]
  - UNDERDOSE [None]
  - DRUG INEFFECTIVE [None]
  - DRUG PRESCRIBING ERROR [None]
